FAERS Safety Report 13375796 (Version 1)
Quarter: 2017Q1

REPORT INFORMATION
  Report Type: Spontaneous
  Country: US (occurrence: US)
  Receive Date: 20170328
  Receipt Date: 20170328
  Transmission Date: 20170429
  Serious: Yes (Other)
  Sender: FDA-Public Use
  Company Number: US-AUROBINDO-AUR-APL-2017-31224

PATIENT
  Age: 25 Year
  Sex: Female

DRUGS (4)
  1. AZATHIOPRINE. [Suspect]
     Active Substance: AZATHIOPRINE
     Dosage: 50 MG, DAILY
     Route: 048
     Dates: start: 201305
  2. PREDNISONE. [Suspect]
     Active Substance: PREDNISONE
     Indication: HYPEREOSINOPHILIC SYNDROME
     Dosage: 40 MG, DAILY
     Route: 048
     Dates: start: 201112
  3. INTERFERON ALFA-2B [Suspect]
     Active Substance: INTERFERON ALFA-2B
     Indication: PRODUCT USED FOR UNKNOWN INDICATION
     Dosage: 50 ?G/WEEK
     Route: 058
     Dates: start: 201204, end: 201206
  4. PREDNISONE. [Suspect]
     Active Substance: PREDNISONE
     Dosage: 2.5 MG, DAILY
     Route: 048

REACTIONS (8)
  - Nausea [Recovered/Resolved]
  - Suicidal ideation [Recovered/Resolved]
  - Hepatic enzyme increased [Recovered/Resolved]
  - Idiosyncratic drug reaction [Recovered/Resolved]
  - Headache [Recovered/Resolved]
  - Depression [Recovered/Resolved]
  - Weight increased [Recovered/Resolved]
  - Mood swings [Recovered/Resolved]
